FAERS Safety Report 6693886-1 (Version None)
Quarter: 2010Q2

REPORT INFORMATION
  Report Type: 
  Country: None (occurrence: None)
  Receive Date: 20100423
  Receipt Date: 20100415
  Transmission Date: 20101027
  Serious: Yes (Hospitalization)
  Sender: FDA-Public Use
  Company Number: PHHY2010CN24050

PATIENT
  Age: 75 Year
  Sex: Male

DRUGS (4)
  1. ACLASTA [Suspect]
     Dosage: UNK
     Route: 042
     Dates: start: 20100411
  2. VI-DE3 [Concomitant]
  3. CALTRATE [Concomitant]
  4. TYLENOL-500 [Concomitant]

REACTIONS (5)
  - EXPRESSIVE LANGUAGE DISORDER [None]
  - GENERAL PHYSICAL HEALTH DETERIORATION [None]
  - PAIN OF SKIN [None]
  - PYREXIA [None]
  - SPEECH DISORDER [None]
